FAERS Safety Report 10043368 (Version 3)
Quarter: 2014Q2

REPORT INFORMATION
  Report Type: Report from Study
  Country: TR (occurrence: TR)
  Receive Date: 20140328
  Receipt Date: 20140402
  Transmission Date: 20141212
  Serious: Yes (Death)
  Sender: FDA-Public Use
  Company Number: PHHY2012TR037675

PATIENT
  Age: 75 Year
  Sex: Female

DRUGS (1)
  1. TASIGNA [Suspect]
     Indication: CHRONIC MYELOID LEUKAEMIA
     Dosage: 800 MG, DAILY
     Route: 048
     Dates: start: 20071030

REACTIONS (5)
  - Death [Fatal]
  - Malaise [Unknown]
  - Dizziness [Unknown]
  - Muscular weakness [Unknown]
  - Fatigue [Unknown]
